FAERS Safety Report 4878018-4 (Version None)
Quarter: 2006Q1

REPORT INFORMATION
  Report Type: 
  Country: None (occurrence: None)
  Receive Date: 20060111
  Receipt Date: 20051230
  Transmission Date: 20060701
  Serious: Yes (Death, Other)
  Sender: FDA-Public Use
  Company Number: 2006AP00061

PATIENT
  Age: 87 Year
  Sex: Male

DRUGS (5)
  1. QUETIAPINE FUMARATE [Suspect]
     Indication: RESTLESSNESS
     Route: 048
  2. RISPERDAL [Suspect]
     Indication: RESTLESSNESS
     Route: 048
     Dates: start: 20050502
  3. RISPERDAL [Suspect]
     Route: 048
     Dates: start: 20051026
  4. MIANSERIN HYDROCHLORIDE [Suspect]
     Indication: RESTLESSNESS
     Route: 048
  5. HYDROXYZINE PAMOATE [Concomitant]
     Route: 048

REACTIONS (2)
  - DEATH [None]
  - MIOSIS [None]
